FAERS Safety Report 18810563 (Version 1)
Quarter: 2021Q1

REPORT INFORMATION
  Report Type: Spontaneous
  Country: CA (occurrence: CA)
  Receive Date: 20210129
  Receipt Date: 20210129
  Transmission Date: 20210419
  Serious: Yes (Other)
  Sender: FDA-Public Use
  Company Number: CA-PURDUE-USA-2020-0201766

PATIENT
  Sex: Male

DRUGS (1)
  1. OXYCONTIN [Suspect]
     Active Substance: OXYCODONE HYDROCHLORIDE
     Indication: PRODUCT USED FOR UNKNOWN INDICATION
     Dosage: UNK
     Route: 048

REACTIONS (13)
  - Seizure [Unknown]
  - Respiratory rate decreased [Unknown]
  - Pruritus [Unknown]
  - Vomiting [Unknown]
  - Loss of consciousness [Unknown]
  - Drug dependence [Unknown]
  - Nausea [Unknown]
  - Rash [Unknown]
  - Mood swings [Unknown]
  - Dizziness [Unknown]
  - Respiratory depression [Unknown]
  - Tooth loss [Unknown]
  - Constipation [Unknown]
